FAERS Safety Report 19746890 (Version 1)
Quarter: 2021Q3

REPORT INFORMATION
  Report Type: Spontaneous
  Country: IT (occurrence: IT)
  Receive Date: 20210826
  Receipt Date: 20210826
  Transmission Date: 20211014
  Serious: Yes (Hospitalization, Other)
  Sender: FDA-Public Use
  Company Number: IT-AUROBINDO-AUR-APL-2021-036182

PATIENT
  Age: 15 Year
  Sex: Female
  Weight: 65 kg

DRUGS (1)
  1. PARACETAMOL [Suspect]
     Active Substance: ACETAMINOPHEN
     Indication: PRODUCT USED FOR UNKNOWN INDICATION
     Dosage: 5 GRAM
     Route: 048
     Dates: start: 20210710, end: 20210710

REACTIONS (3)
  - Intentional self-injury [Recovering/Resolving]
  - Nausea [Recovering/Resolving]
  - Suicide attempt [Recovering/Resolving]

NARRATIVE: CASE EVENT DATE: 20210710
